FAERS Safety Report 7137322-X (Version None)
Quarter: 2010Q4

REPORT INFORMATION
  Report Type: 
  Country: None (occurrence: None)
  Receive Date: 20101206
  Receipt Date: 20101123
  Transmission Date: 20110411
  Serious: Yes (Disabling)
  Sender: FDA-Public Use
  Company Number: PHHY2010US54929

PATIENT
  Sex: Female

DRUGS (7)
  1. RECLAST [Suspect]
     Indication: OSTEOPOROSIS POSTMENOPAUSAL
     Dosage: 5 MG
     Dates: start: 20100208
  2. MOBIC [Concomitant]
     Dosage: 7.5 MG, QD
     Route: 048
  3. CYTOMEL [Concomitant]
     Indication: BLOOD PARATHYROID HORMONE
     Dosage: 25 MG, QD
     Route: 048
  4. VITAMIN D [Concomitant]
     Dosage: 400 UNITS DAILY
     Route: 048
  5. ESTRACE [Concomitant]
     Dosage: 0.5 MG, QD
     Route: 048
  6. VICODIN [Concomitant]
     Indication: PAIN
     Dosage: UNK
     Route: 048
  7. LEVOTHYROXINE SODIUM [Concomitant]
     Indication: THYROID DISORDER
     Dosage: 100 MG, QD
     Route: 048

REACTIONS (8)
  - BLOOD CHLORIDE INCREASED [None]
  - BLOOD UREA INCREASED [None]
  - HYPOAESTHESIA [None]
  - JOINT STIFFNESS [None]
  - MUSCULAR WEAKNESS [None]
  - MUSCULOSKELETAL STIFFNESS [None]
  - PAIN [None]
  - PARAESTHESIA [None]
